FAERS Safety Report 7338332-X (Version None)
Quarter: 2011Q1

REPORT INFORMATION
  Report Type: 
  Country: None (occurrence: None)
  Receive Date: 20110224
  Receipt Date: 20110209
  Transmission Date: 20110831
  Serious: Yes (Life-Threatening)
  Sender: FDA-Public Use
  Company Number: GER/UKI/11/0017393

PATIENT
  Age: 88 Year
  Sex: Female

DRUGS (8)
  1. CITALOPRAM (CITALOPRAM) [Suspect]
     Indication: DEPRESSION
     Dosage: 20 MG, ORAL
     Route: 048
     Dates: end: 20101101
  2. OMEPRAZOLE [Suspect]
     Indication: GASTROINTESTINAL DISORDER
     Dosage: 20 MG, ORAL
     Route: 048
  3. CLOPIDOGREL [Concomitant]
  4. TRIMETHOPRIM [Concomitant]
  5. LACTULOSE [Concomitant]
  6. RAMIPRIL [Concomitant]
  7. SIMVASTATIN [Concomitant]
  8. TILDIEM LA (DILTIAZEM HYDROCHLORIDE) [Concomitant]

REACTIONS (1)
  - HYPONATRAEMIA [None]
